FAERS Safety Report 23179851 (Version 1)
Quarter: 2023Q4

REPORT INFORMATION
  Report Type: Spontaneous
  Country: IT (occurrence: IT)
  Receive Date: 20231114
  Receipt Date: 20231114
  Transmission Date: 20240110
  Serious: Yes (Life-Threatening, Other)
  Sender: FDA-Public Use
  Company Number: IT-AMGEN-ITASP2023200783

PATIENT
  Age: 67 Year
  Sex: Male

DRUGS (7)
  1. FILGRASTIM [Suspect]
     Active Substance: FILGRASTIM
     Indication: Neutropenia
     Dosage: 30 MILLION UNIT, QD
     Route: 065
  2. CISPLATIN [Concomitant]
     Active Substance: CISPLATIN
     Indication: Bladder cancer
     Dosage: 70 MILLIGRAM/SQ. METER ON DAY 1
  3. GEMCITABINE [Concomitant]
     Active Substance: GEMCITABINE
     Indication: Bladder cancer
     Dosage: 1000 MILLIGRAM/SQ. METER, 1 AND 8, ADMINISTERED EVERY 21 DAYS
  4. SOTROVIMAB [Concomitant]
     Active Substance: SOTROVIMAB
     Dosage: 500 MILLIGRAM
  5. NIRMATRELVIR [Concomitant]
     Active Substance: NIRMATRELVIR
     Dosage: MG/ 100 MG EVERY 12 HOURS FOR 5 DAYS
  6. RITONAVIR [Concomitant]
     Active Substance: RITONAVIR
     Dosage: 150 MG/ 100 MG EVERY 12 HOURS FOR 5 DAYS
  7. AVELUMAB [Concomitant]
     Active Substance: AVELUMAB
     Dosage: UNK
     Dates: start: 202305

REACTIONS (4)
  - Organising pneumonia [Unknown]
  - Neutropenia [Recovered/Resolved]
  - Abdominal lymphadenopathy [Unknown]
  - Pulmonary mass [Unknown]
